FAERS Safety Report 20263295 (Version 1)
Quarter: 2021Q4

REPORT INFORMATION
  Report Type: Spontaneous
  Country: US (occurrence: US)
  Receive Date: 20211231
  Receipt Date: 20211231
  Transmission Date: 20220303
  Serious: No
  Sender: FDA-Public Use
  Company Number: US-GLAXOSMITHKLINE-US2021263768

PATIENT
  Sex: Female

DRUGS (2)
  1. INCRUSE ELLIPTA [Suspect]
     Active Substance: UMECLIDINIUM BROMIDE
     Indication: Asthma
     Dosage: INCRUSE ELLIPTA INHALER 30
     Dates: end: 20210801
  2. ANORO ELLIPTA [Suspect]
     Active Substance: UMECLIDINIUM BROMIDE\VILANTEROL TRIFENATATE
     Indication: Asthma
     Dosage: ANORO ELLIPTA 62.525MCG INH 60
     Dates: start: 20210801

REACTIONS (3)
  - Drug ineffective [Unknown]
  - Off label use [Unknown]
  - Ill-defined disorder [Unknown]
